FAERS Safety Report 6768746-8 (Version None)
Quarter: 2010Q2

REPORT INFORMATION
  Report Type: 
  Country: None (occurrence: None)
  Receive Date: 20100614
  Receipt Date: 20100603
  Transmission Date: 20101027
  Serious: Yes (Other)
  Sender: FDA-Public Use
  Company Number: LB-GENENTECH-302668

PATIENT

DRUGS (1)
  1. MABTHERA [Suspect]
     Indication: VASCULITIS
     Dosage: UNK
     Route: 042

REACTIONS (1)
  - RESPIRATORY FAILURE [None]
